FAERS Safety Report 18926678 (Version 1)
Quarter: 2021Q1

REPORT INFORMATION
  Report Type: Spontaneous
  Country: PL (occurrence: PL)
  Receive Date: 20210223
  Receipt Date: 20210223
  Transmission Date: 20210420
  Serious: Yes (Other)
  Sender: FDA-Public Use
  Company Number: PL-TEVA-2021-PL-1881985

PATIENT
  Age: 66 Year
  Sex: Male
  Weight: 101 kg

DRUGS (4)
  1. FLUOROURACIL. [Suspect]
     Active Substance: FLUOROURACIL
     Indication: COLON CANCER
     Dosage: 832, DOSE UNIT UNKNOWN.
     Route: 040
     Dates: start: 20170711, end: 20171108
  2. CALCIUM FOLINATE [Suspect]
     Active Substance: LEUCOVORIN CALCIUM
     Indication: COLON CANCER
     Dosage: 416, DOSE UNIT UNKNOWN.
     Route: 042
     Dates: start: 20170711, end: 20171108
  3. FLUOROURACIL. [Suspect]
     Active Substance: FLUOROURACIL
     Dosage: 1248, DOSE UNIT UNKNOWN.
     Route: 041
     Dates: start: 20170711, end: 20171108
  4. IRINOTECAN [Suspect]
     Active Substance: IRINOTECAN
     Indication: COLON CANCER
     Dosage: 374.4, DOSE UNIT UNKNOWN.
     Route: 042
     Dates: start: 20170711, end: 20171108

REACTIONS (1)
  - Neutropenia [Unknown]

NARRATIVE: CASE EVENT DATE: 20171121
